FAERS Safety Report 5954612-4 (Version None)
Quarter: 2008Q4

REPORT INFORMATION
  Report Type: 
  Country: None (occurrence: None)
  Receive Date: 20081117
  Receipt Date: 20081110
  Transmission Date: 20090506
  Serious: Yes (Other)
  Sender: FDA-Public Use
  Company Number: US-AMGEN-QUU316194

PATIENT
  Sex: Female
  Weight: 79.5 kg

DRUGS (4)
  1. EPOGEN [Suspect]
     Indication: RENAL FAILURE CHRONIC
     Route: 058
  2. NEORAL [Concomitant]
  3. TOPROL-XL [Concomitant]
  4. LISINOPRIL [Concomitant]

REACTIONS (4)
  - BLOOD PRESSURE INCREASED [None]
  - DEPRESSION [None]
  - HEADACHE [None]
  - TRANSPLANT FAILURE [None]
